FAERS Safety Report 8514432-3 (Version None)
Quarter: 2012Q3

REPORT INFORMATION
  Report Type: 
  Country: None (occurrence: None)
  Receive Date: 20120717
  Receipt Date: 20120709
  Transmission Date: 20120928
  Serious: Yes (Other)
  Sender: FDA-Public Use
  Company Number: US-US-EMD SERONO, INC.-7146730

PATIENT
  Sex: Male

DRUGS (8)
  1. FLOVENT [Concomitant]
     Indication: PRODUCT USED FOR UNKNOWN INDICATION
  2. SAIZEN [Suspect]
     Indication: BODY HEIGHT BELOW NORMAL
     Route: 058
     Dates: start: 20110628
  3. SAIZEN [Suspect]
     Route: 058
  4. SAIZEN [Suspect]
     Route: 058
  5. SAIZEN [Suspect]
     Route: 058
  6. NASONEX [Concomitant]
     Indication: PRODUCT USED FOR UNKNOWN INDICATION
  7. MULTI-VITAMINS [Concomitant]
     Indication: PRODUCT USED FOR UNKNOWN INDICATION
     Route: 048
  8. STRATTERA [Concomitant]
     Indication: PRODUCT USED FOR UNKNOWN INDICATION

REACTIONS (4)
  - CLAVICLE FRACTURE [None]
  - INAPPROPRIATE SCHEDULE OF DRUG ADMINISTRATION [None]
  - THYROXINE DECREASED [None]
  - BLOOD CORTISOL DECREASED [None]
